FAERS Safety Report 11943109 (Version 4)
Quarter: 2016Q3

REPORT INFORMATION
  Report Type: Report from Study
  Country: CA (occurrence: CA)
  Receive Date: 20160125
  Receipt Date: 20160804
  Transmission Date: 20161109
  Serious: Yes (Hospitalization, Other)
  Sender: FDA-Public Use
  Company Number: CA-ROCHE-738965

PATIENT
  Age: 59 Year
  Sex: Female
  Weight: 72.6 kg

DRUGS (25)
  1. HYDROCHLOROTHIAZIDE. [Concomitant]
     Active Substance: HYDROCHLOROTHIAZIDE
     Route: 065
  2. PROGESTERONE. [Concomitant]
     Active Substance: PROGESTERONE
     Route: 065
  3. INDOMETHACIN. [Concomitant]
     Active Substance: INDOMETHACIN
  4. ASA [Concomitant]
     Active Substance: ASPIRIN
     Route: 065
  5. FLAXSEED [Concomitant]
     Active Substance: FLAX SEED
  6. METHYLPREDNISOLONE. [Concomitant]
     Active Substance: METHYLPREDNISOLONE
     Indication: PREMEDICATION
     Route: 042
     Dates: start: 20100125
  7. APO-TRIAZIDE [Concomitant]
     Active Substance: HYDROCHLOROTHIAZIDE\TRIAMTERENE
     Indication: HYPERTENSION
  8. FOLIC ACID. [Concomitant]
     Active Substance: FOLIC ACID
  9. SYMBICORT [Concomitant]
     Active Substance: BUDESONIDE\FORMOTEROL FUMARATE DIHYDRATE
  10. METHYLPREDNISOLONE. [Concomitant]
     Active Substance: METHYLPREDNISOLONE
     Dosage: ONCE
     Route: 042
     Dates: start: 20110316, end: 20110316
  11. IBUPROFEN. [Concomitant]
     Active Substance: IBUPROFEN
  12. MODUCARE [Concomitant]
  13. RESVERATROL [Concomitant]
     Active Substance: RESVERATROL
  14. PANTOLOC [Concomitant]
     Active Substance: PANTOPRAZOLE SODIUM
  15. CORTISONE [Suspect]
     Active Substance: CORTISONE\HYDROCORTISONE
     Indication: PRODUCT USED FOR UNKNOWN INDICATION
     Route: 065
     Dates: start: 20110316, end: 20110316
  16. CRESTOR [Concomitant]
     Active Substance: ROSUVASTATIN CALCIUM
     Route: 065
  17. VITAMIN C [Concomitant]
     Active Substance: ASCORBIC ACID
  18. ACETAMINOPHEN. [Concomitant]
     Active Substance: ACETAMINOPHEN
     Dosage: FREQUENCY: ONCE.
     Route: 048
     Dates: start: 20110316, end: 20110316
  19. VENTOLIN [Concomitant]
     Active Substance: ALBUTEROL SULFATE
  20. METAMUCIL [Concomitant]
     Active Substance: PLANTAGO SEED
  21. RITUXAN [Suspect]
     Active Substance: RITUXIMAB
     Indication: RHEUMATOID ARTHRITIS
     Dosage: LAST DOSE ON 24/SEP/2015
     Route: 042
  22. ACETAMINOPHEN. [Concomitant]
     Active Substance: ACETAMINOPHEN
     Indication: PREMEDICATION
     Route: 048
  23. ESTRAGEL [Concomitant]
  24. INDOCID [Concomitant]
     Active Substance: INDOMETHACIN
     Route: 065
  25. DIPHENHYDRAMINE HCL [Concomitant]
     Active Substance: DIPHENHYDRAMINE HYDROCHLORIDE
     Indication: PREMEDICATION
     Route: 048
     Dates: start: 20100125

REACTIONS (24)
  - Musculoskeletal stiffness [Unknown]
  - Productive cough [Not Recovered/Not Resolved]
  - Pneumonia [Not Recovered/Not Resolved]
  - Arthralgia [Not Recovered/Not Resolved]
  - Pyrexia [Unknown]
  - Joint stiffness [Unknown]
  - Headache [Unknown]
  - Arthralgia [Unknown]
  - Alopecia [Unknown]
  - Oxygen saturation decreased [Unknown]
  - Arthrodesis [Not Recovered/Not Resolved]
  - Ill-defined disorder [Unknown]
  - Heart rate decreased [Unknown]
  - Bone erosion [Not Recovered/Not Resolved]
  - Nasopharyngitis [Unknown]
  - Insomnia [Recovered/Resolved]
  - Rheumatoid arthritis [Not Recovered/Not Resolved]
  - Oropharyngeal pain [Recovered/Resolved]
  - Weight increased [Not Recovered/Not Resolved]
  - Blood pressure increased [Unknown]
  - White blood cell count decreased [Not Recovered/Not Resolved]
  - Pain in extremity [Not Recovered/Not Resolved]
  - Bursitis [Unknown]
  - Asthenia [Not Recovered/Not Resolved]

NARRATIVE: CASE EVENT DATE: 201009
